FAERS Safety Report 10416519 (Version 6)
Quarter: 2014Q4

REPORT INFORMATION
  Report Type: Report from Study
  Country: US (occurrence: US)
  Receive Date: 20140828
  Receipt Date: 20141212
  Transmission Date: 20150528
  Serious: Yes (Hospitalization, Other)
  Sender: FDA-Public Use
  Company Number: US-ALEXION-A201403208

PATIENT

DRUGS (3)
  1. CHEMO [Concomitant]
     Active Substance: UNSPECIFIED INGREDIENT
     Indication: NEOPLASM MALIGNANT
     Route: 042
  2. SOLIRIS [Suspect]
     Active Substance: ECULIZUMAB
     Indication: PRODUCT USED FOR UNKNOWN INDICATION
     Dosage: UNK
     Route: 042
  3. CHEMO [Concomitant]
     Active Substance: UNSPECIFIED INGREDIENT
     Dosage: UNK
     Route: 048

REACTIONS (18)
  - Biopsy kidney [Unknown]
  - Dyspnoea [Unknown]
  - Haemoglobin abnormal [Unknown]
  - Dyspnoea exertional [Unknown]
  - Peripheral swelling [Not Recovered/Not Resolved]
  - Dyspnoea exertional [Recovering/Resolving]
  - Lung disorder [Unknown]
  - Biopsy liver abnormal [Unknown]
  - Neck pain [Unknown]
  - Neoplasm malignant [Unknown]
  - Renal impairment [Unknown]
  - Platelet count increased [Unknown]
  - Pain in extremity [Not Recovered/Not Resolved]
  - Peripheral swelling [Recovering/Resolving]
  - Proteinuria [Unknown]
  - Haemoglobin increased [Unknown]
  - Headache [Unknown]
  - Weight decreased [Unknown]

NARRATIVE: CASE EVENT DATE: 20140901
